FAERS Safety Report 18249490 (Version 1)
Quarter: 2020Q3

REPORT INFORMATION
  Report Type: Spontaneous
  Country: US (occurrence: US)
  Receive Date: 20200909
  Receipt Date: 20200909
  Transmission Date: 20201103
  Serious: No
  Sender: FDA-Public Use
  Company Number: US-PFIZER INC-2020236518

PATIENT
  Age: 57 Year
  Sex: Female

DRUGS (3)
  1. IBRANCE [Suspect]
     Active Substance: PALBOCICLIB
     Indication: BREAST CANCER FEMALE
     Dosage: 125 MG, CYCLIC (1 DAILY FOR 21 DAYS)
     Route: 048
     Dates: start: 20200511
  2. IBRANCE [Suspect]
     Active Substance: PALBOCICLIB
     Dosage: 100 MG, CYCLIC(21 DAYS ON, 7 DAYS OFF)
     Route: 048
     Dates: start: 20200511
  3. FIBER [Concomitant]
     Active Substance: PSYLLIUM HUSK
     Dosage: 0.52 G

REACTIONS (1)
  - Alopecia [Not Recovered/Not Resolved]
